FAERS Safety Report 6839202-3 (Version None)
Quarter: 2010Q3

REPORT INFORMATION
  Report Type: 
  Country: None (occurrence: None)
  Receive Date: 20100709
  Receipt Date: 20100628
  Transmission Date: 20110219
  Serious: Yes (Hospitalization, Other)
  Sender: FDA-Public Use
  Company Number: 2009JP003949

PATIENT

DRUGS (8)
  1. PROGRAF [Suspect]
     Indication: RENAL TRANSPLANT
     Dosage: 4 MG, 2 MG
  2. MYCOPHENOLATE MOFETIL [Concomitant]
  3. METHYLPREDNISOLONE [Concomitant]
  4. PREDNISOLONE [Concomitant]
  5. AMLODIPINE BESYLATE [Concomitant]
  6. LOSARTAN POTASSIUM [Concomitant]
  7. DIPYRIDAMOLE [Concomitant]
  8. DILTIAZEM HYDROCHLORIDE [Concomitant]

REACTIONS (13)
  - BLOOD ALBUMIN DECREASED [None]
  - BLOOD CHOLESTEROL INCREASED [None]
  - DECREASED APPETITE [None]
  - DISEASE RECURRENCE [None]
  - DRUG TOXICITY [None]
  - EPSTEIN-BARR VIRUS ASSOCIATED LYMPHOPROLIFERATIVE DISORDER [None]
  - FOCAL SEGMENTAL GLOMERULOSCLEROSIS [None]
  - NEPHROPATHY TOXIC [None]
  - OEDEMA [None]
  - OEDEMA PERIPHERAL [None]
  - RENAL VESSEL DISORDER [None]
  - SOMNOLENCE [None]
  - WEIGHT INCREASED [None]
